FAERS Safety Report 6891829-9 (Version None)
Quarter: 2010Q3

REPORT INFORMATION
  Report Type: 
  Country: None (occurrence: None)
  Receive Date: 20100731
  Receipt Date: 20070816
  Transmission Date: 20110219
  Serious: No
  Sender: FDA-Public Use
  Company Number: US-PFIZER INC-2007070758

PATIENT
  Age: 79 Year
  Sex: Female

DRUGS (3)
  1. NORVASC [Suspect]
  2. XANAX [Concomitant]
     Dosage: PRN
     Route: 048
  3. CHANTIX [Concomitant]
     Indication: SMOKING CESSATION THERAPY
     Route: 048
     Dates: start: 20070106, end: 20070201

REACTIONS (1)
  - SWELLING [None]
